FAERS Safety Report 9390268 (Version 1)
Quarter: 2013Q3

REPORT INFORMATION
  Report Type: Spontaneous
  Country: FR (occurrence: FR)
  Receive Date: 20130708
  Receipt Date: 20130708
  Transmission Date: 20140515
  Serious: Yes (Hospitalization)
  Sender: FDA-Public Use
  Company Number: FR-ROCHE-1245131

PATIENT
  Age: 71 Year
  Sex: Male

DRUGS (15)
  1. ROCEPHINE [Suspect]
     Indication: PROSTATITIS
     Route: 042
     Dates: start: 20130521, end: 20130523
  2. ROCEPHINE [Suspect]
     Route: 042
     Dates: start: 20130527, end: 20130530
  3. AMOXICILLINE [Suspect]
     Indication: PROSTATITIS
     Route: 048
     Dates: start: 20130404, end: 20130409
  4. AUGMENTIN [Suspect]
     Indication: PROSTATITIS
     Route: 048
     Dates: start: 20130517
  5. OFLOCET [Suspect]
     Indication: PROSTATITIS
     Route: 042
     Dates: start: 20130517, end: 20130525
  6. TAVANIC [Suspect]
     Indication: PROSTATITIS
     Route: 042
     Dates: start: 20130525, end: 20130527
  7. KARDEGIC [Concomitant]
  8. CIPROFLOXACIN [Concomitant]
     Route: 065
     Dates: start: 20130602, end: 20130610
  9. ZOFENIL [Concomitant]
  10. ATORVASTATIN [Concomitant]
  11. LESCOL [Concomitant]
  12. ATARAX (FRANCE) [Concomitant]
  13. BACTRIM [Concomitant]
     Route: 065
     Dates: start: 20130527, end: 20130530
  14. CEFOXITIN [Concomitant]
     Route: 065
     Dates: start: 20130530, end: 20130610
  15. GENTAMICIN [Concomitant]
     Route: 065
     Dates: start: 20130530, end: 20130602

REACTIONS (1)
  - Drug reaction with eosinophilia and systemic symptoms [Recovering/Resolving]
